FAERS Safety Report 9379728 (Version 1)
Quarter: 2013Q3

REPORT INFORMATION
  Report Type: Spontaneous
  Country: JP (occurrence: JP)
  Receive Date: 20130702
  Receipt Date: 20130702
  Transmission Date: 20140515
  Serious: Yes (Other)
  Sender: FDA-Public Use
  Company Number: JP-MYLANLABS-2013S1014216

PATIENT
  Sex: 0

DRUGS (1)
  1. REMIFENTANIL [Suspect]
     Indication: ANAESTHESIA

REACTIONS (2)
  - Respiratory depression [Unknown]
  - Infusion related reaction [Unknown]
